FAERS Safety Report 7250565-X (Version None)
Quarter: 2011Q1

REPORT INFORMATION
  Report Type: 
  Country: None (occurrence: None)
  Receive Date: 20110128
  Receipt Date: 20110121
  Transmission Date: 20110831
  Serious: Yes (Life-Threatening, Hospitalization)
  Sender: FDA-Public Use
  Company Number: US-ROCHE-755599

PATIENT
  Sex: Male
  Weight: 77 kg

DRUGS (9)
  1. LOVENOX [Concomitant]
  2. CARBOPLATIN [Suspect]
     Indication: GLIOBLASTOMA
     Dosage: DRUG : CARBOPLATIN AUC 4
     Route: 042
     Dates: start: 20101202
  3. INSULIN ASPART [Concomitant]
  4. SENNA [Concomitant]
     Dosage: SENNNA/COLACE, FREQUENCY: PRN
  5. BEVACIZUMAB [Suspect]
     Indication: GLIOBLASTOMA
     Dosage: THERAPY HELD
     Route: 065
     Dates: start: 20101202, end: 20101216
  6. IRINOTECAN HCL [Suspect]
     Indication: GLIOBLASTOMA
     Dosage: THERAPY HELD
     Route: 065
     Dates: start: 20101202, end: 20101216
  7. DECADRON [Concomitant]
  8. VITAMIN E [Concomitant]
     Dosage: DOSE: 400 UNITS
  9. PERCOCET [Concomitant]
     Dosage: MAX FREQUENCY: PRN

REACTIONS (6)
  - NEUTROPENIC INFECTION [None]
  - HAEMOGLOBIN [None]
  - THROMBOCYTOPENIA [None]
  - NEUTROPENIA [None]
  - ORAL CANDIDIASIS [None]
  - PNEUMONIA ASPIRATION [None]
